FAERS Safety Report 18456751 (Version 1)
Quarter: 2020Q4

REPORT INFORMATION
  Report Type: Spontaneous
  Country: US (occurrence: US)
  Receive Date: 20201102
  Receipt Date: 20201102
  Transmission Date: 20210114
  Serious: No
  Sender: FDA-Public Use
  Company Number: None

PATIENT
  Age: 73 Year
  Sex: Female

DRUGS (18)
  1. OPDIVO [Suspect]
     Active Substance: NIVOLUMAB
     Indication: PRODUCT USED FOR UNKNOWN INDICATION
     Route: 042
     Dates: start: 20200916
  2. REGLAN, [Concomitant]
  3. GABAPENTIN, [Concomitant]
  4. HYOROMORPHONE HCL, [Concomitant]
  5. LORAZEPAM, [Concomitant]
  6. OXYCODONE/ACETAMINOPHE [Concomitant]
  7. COMPAZINE, [Concomitant]
  8. LISINOPRIL, [Concomitant]
  9. MORPHINE SULFATE, [Concomitant]
  10. AUGMENTIN, [Concomitant]
  11. PYRIDIUM, [Concomitant]
  12. STIVARGA [Suspect]
     Active Substance: REGORAFENIB
  13. ZOFRAN [Concomitant]
     Active Substance: ONDANSETRON HYDROCHLORIDE
  14. SANCUSO, [Concomitant]
  15. ENOXAPARIN SODI [Concomitant]
  16. LIDOCAINE-PRILOCAINE-CREA, [Concomitant]
  17. NORCO, [Concomitant]
  18. STIVARGA, [Concomitant]

REACTIONS (4)
  - Vomiting [None]
  - Skin exfoliation [None]
  - Bedridden [None]
  - Stomatitis [None]

NARRATIVE: CASE EVENT DATE: 20201030
